FAERS Safety Report 5695830-2 (Version None)
Quarter: 2008Q2

REPORT INFORMATION
  Report Type: 
  Country: None (occurrence: None)
  Receive Date: 20080407
  Receipt Date: 20080327
  Transmission Date: 20081010
  Serious: Yes (Hospitalization)
  Sender: FDA-Public Use
  Company Number: US-JNJFOC-20080400022

PATIENT
  Sex: Female
  Weight: 77.11 kg

DRUGS (3)
  1. DURAGESIC-100 [Suspect]
     Route: 062
  2. DURAGESIC-100 [Suspect]
     Indication: PAIN
     Route: 062
  3. FENTANYL TRANSDERMAL SYSTEM [Suspect]
     Indication: PAIN
     Route: 062

REACTIONS (10)
  - BACTERAEMIA [None]
  - BLISTER [None]
  - CELLULITIS [None]
  - HYPERHIDROSIS [None]
  - OEDEMA [None]
  - PAIN [None]
  - PYREXIA [None]
  - STAPHYLOCOCCAL INFECTION [None]
  - WEIGHT FLUCTUATION [None]
  - WRONG TECHNIQUE IN DRUG USAGE PROCESS [None]
